FAERS Safety Report 20680683 (Version 21)
Quarter: 2024Q4

REPORT INFORMATION
  Report Type: Report from Study
  Country: CO (occurrence: CO)
  Receive Date: 20220406
  Receipt Date: 20241217
  Transmission Date: 20250115
  Serious: Yes (Other)
  Sender: TAKEDA
  Company Number: CO-TAKEDA-CO202021396

PATIENT
  Age: 63 Year
  Sex: Male
  Weight: 70 kg

DRUGS (6)
  1. ICATIBANT [Suspect]
     Active Substance: ICATIBANT ACETATE
     Indication: Hereditary angioedema
     Dosage: 30 MILLIGRAM
  2. ICATIBANT [Suspect]
     Active Substance: ICATIBANT ACETATE
     Dosage: 30 MILLIGRAM
  3. ICATIBANT [Suspect]
     Active Substance: ICATIBANT ACETATE
     Dosage: 30 MILLIGRAM, Q6HR
  4. ICATIBANT [Suspect]
     Active Substance: ICATIBANT ACETATE
     Dosage: UNK
  5. LANTUS [Concomitant]
     Active Substance: INSULIN GLARGINE
     Dosage: UNK UNK, QD
  6. NOVORAPID [Concomitant]
     Active Substance: INSULIN ASPART
     Indication: Product used for unknown indication
     Dosage: UNK UNK, QD

REACTIONS (16)
  - COVID-19 [Recovered/Resolved with Sequelae]
  - Penile haemorrhage [Recovered/Resolved]
  - Cough [Not Recovered/Not Resolved]
  - Rhinorrhoea [Recovering/Resolving]
  - Weight increased [Unknown]
  - Weight decreased [Unknown]
  - Dysphonia [Recovering/Resolving]
  - Oropharyngeal pain [Recovered/Resolved]
  - Vomiting [Not Recovered/Not Resolved]
  - Malaise [Recovered/Resolved]
  - Frequent bowel movements [Recovered/Resolved]
  - Chest pain [Not Recovered/Not Resolved]
  - Nasal congestion [Recovered/Resolved]
  - Diarrhoea [Not Recovered/Not Resolved]
  - Pyrexia [Not Recovered/Not Resolved]
  - Headache [Recovered/Resolved]

NARRATIVE: CASE EVENT DATE: 20200623
